FAERS Safety Report 9153519 (Version 1)
Quarter: 2013Q1

REPORT INFORMATION
  Report Type: Spontaneous
  Country: US (occurrence: None)
  Receive Date: 20130204
  Receipt Date: 20130204
  Transmission Date: 20140127
  Serious: Yes (Hospitalization)
  Sender: FDA-Public Use
  Company Number: 2013/018

PATIENT
  Age: 14 Year
  Sex: Female

DRUGS (1)
  1. OLANZAPINE [Suspect]
     Indication: SCHIZOPHRENIA

REACTIONS (6)
  - Catatonia [None]
  - Hallucination, auditory [None]
  - Anxiety [None]
  - Stupor [None]
  - Pneumonia [None]
  - Neuroleptic malignant syndrome [None]
